FAERS Safety Report 18563583 (Version 2)
Quarter: 2020Q4

REPORT INFORMATION
  Report Type: Report from Study
  Country: BR (occurrence: BR)
  Receive Date: 20201201
  Receipt Date: 20201216
  Transmission Date: 20210114
  Serious: Yes (Hospitalization, Other)
  Sender: FDA-Public Use
  Company Number: NVSC2020BR318250

PATIENT
  Age: 70 Year
  Sex: Male
  Weight: 70 kg

DRUGS (7)
  1. PREDNISONE. [Concomitant]
     Active Substance: PREDNISONE
     Indication: ASTHMA
     Dosage: 200 MG, BID
     Route: 048
     Dates: start: 2010
  2. ONBRIZE [Suspect]
     Active Substance: INDACATEROL MALEATE
     Indication: ASTHMA
     Dosage: 150 MG (ONE CAPSULE), QD
     Route: 055
     Dates: start: 2012
  3. XOLAIR [Concomitant]
     Active Substance: OMALIZUMAB
     Dosage: UNK
     Route: 065
     Dates: start: 20201006
  4. XOLAIR [Concomitant]
     Active Substance: OMALIZUMAB
     Indication: ASTHMA
     Dosage: 150 MG (ONE AMPOULE) EVERY 15 DAYS
     Route: 065
     Dates: start: 20170804
  5. SPIRIVA [Concomitant]
     Active Substance: TIOTROPIUM BROMIDE MONOHYDRATE
     Indication: ASTHMA
     Dosage: 2 DF AT ONCE, QD
     Route: 055
     Dates: start: 2010
  6. XOLAIR [Concomitant]
     Active Substance: OMALIZUMAB
     Dosage: UNK
     Route: 065
     Dates: start: 20200921
  7. OXIMAX [Concomitant]
     Active Substance: MOMETASONE FUROATE
     Indication: ASTHMA
     Dosage: 400 UG, QD
     Route: 048
     Dates: start: 2010

REACTIONS (15)
  - Pain [Recovered/Resolved with Sequelae]
  - Drug dependence [Unknown]
  - Hypodontia [Not Recovered/Not Resolved]
  - Tooth injury [Unknown]
  - Cartilage injury [Not Recovered/Not Resolved]
  - Body height decreased [Unknown]
  - Pneumonia [Recovered/Resolved]
  - Lung disorder [Unknown]
  - Injury [Recovered/Resolved with Sequelae]
  - Skin discolouration [Not Recovered/Not Resolved]
  - Vein rupture [Not Recovered/Not Resolved]
  - Spinal fracture [Recovered/Resolved with Sequelae]
  - Spinal cord disorder [Not Recovered/Not Resolved]
  - Product use in unapproved indication [Unknown]
  - Osteoporosis [Recovered/Resolved with Sequelae]

NARRATIVE: CASE EVENT DATE: 2014
